FAERS Safety Report 23737357 (Version 1)
Quarter: 2024Q2

REPORT INFORMATION
  Report Type: Spontaneous
  Country: BR (occurrence: BR)
  Receive Date: 20240412
  Receipt Date: 20240412
  Transmission Date: 20240716
  Serious: Yes (Death)
  Sender: FDA-Public Use
  Company Number: BR-BoehringerIngelheim-2024-BI-020843

PATIENT
  Age: 59 Year
  Sex: Male
  Weight: 96 kg

DRUGS (1)
  1. ALTEPLASE [Suspect]
     Active Substance: ALTEPLASE
     Indication: Ischaemic stroke
     Dosage: THE DOSE USED WAS 86.4MG ACCORDING TO THE 96KG WEIGHT OF THE PATIENT.
     Route: 065
     Dates: start: 20240408

REACTIONS (3)
  - Anaphylactic shock [Fatal]
  - Cardio-respiratory arrest [Fatal]
  - Cerebrovascular accident [Fatal]

NARRATIVE: CASE EVENT DATE: 20240408
